FAERS Safety Report 9496443 (Version 5)
Quarter: 2014Q4

REPORT INFORMATION
  Report Type: Report from Study
  Country: DE (occurrence: DE)
  Receive Date: 20130904
  Receipt Date: 20141008
  Transmission Date: 20150529
  Serious: Yes (Hospitalization, Other)
  Sender: FDA-Public Use
  Company Number: PHHY2013DE091621

PATIENT
  Age: 65 Year
  Sex: Male

DRUGS (11)
  1. AMITRIPTYLIN [Concomitant]
     Active Substance: AMITRIPTYLINE
     Indication: ANALGESIC THERAPY
     Dosage: 10 MG, UNK
     Dates: start: 201404
  2. MACROGOL [Concomitant]
     Active Substance: POLYETHYLENE GLYCOLS
     Indication: CONSTIPATION PROPHYLAXIS
     Dosage: 30 G, UNK
     Dates: start: 201404
  3. TAMSULOSIN [Concomitant]
     Active Substance: TAMSULOSIN
     Indication: BENIGN PROSTATIC HYPERPLASIA
     Dosage: 0.4 MG, UNK
     Dates: start: 201404
  4. CGP 57148B [Suspect]
     Active Substance: IMATINIB MESYLATE
     Indication: PLATELET-DERIVED GROWTH FACTOR RECEPTOR OVEREXPRESSION
     Dosage: 400 MG, DAILY
     Route: 048
     Dates: start: 200403, end: 201004
  5. CGP 57148B [Suspect]
     Active Substance: IMATINIB MESYLATE
     Dosage: 100 MG, 3 TIMES PER WEEK
     Route: 048
     Dates: start: 20130110, end: 201402
  6. BUPRENORPHINE [Concomitant]
     Active Substance: BUPRENORPHINE
     Indication: ANALGESIC THERAPY
     Dosage: 52.4 MG/72 HR
     Dates: start: 201404
  7. CGP 57148B [Suspect]
     Active Substance: IMATINIB MESYLATE
     Dosage: 400 MG, DAILY
     Route: 048
     Dates: start: 201006, end: 20130110
  8. PANTOPRAZOLE [Concomitant]
     Active Substance: PANTOPRAZOLE SODIUM
     Indication: GASTRITIS PROPHYLAXIS
     Dosage: 40 MG, UNK
     Dates: start: 201404
  9. ALFACALCIDOL [Concomitant]
     Active Substance: ALFACALCIDOL
     Indication: CHRONIC KIDNEY DISEASE
     Dosage: 0.5 UG, UNK
     Dates: start: 201404
  10. CGP 57148B [Suspect]
     Active Substance: IMATINIB MESYLATE
     Indication: CHRONIC EOSINOPHILIC LEUKAEMIA
     Dosage: 200 MG, DAILY
     Route: 048
     Dates: start: 201004, end: 201006
  11. CGP 57148B [Suspect]
     Active Substance: IMATINIB MESYLATE
     Dosage: 50 MG, DAILY
     Route: 048
     Dates: start: 201301

REACTIONS (8)
  - Dehydration [Recovered/Resolved]
  - Embolism arterial [Recovered/Resolved with Sequelae]
  - Acute prerenal failure [Recovered/Resolved]
  - Acute kidney injury [Recovered/Resolved]
  - Heparin-induced thrombocytopenia [Recovered/Resolved with Sequelae]
  - Nephrogenic anaemia [Recovered/Resolved with Sequelae]
  - Thrombocytopenia [Not Recovered/Not Resolved]
  - Bladder obstruction [Recovered/Resolved]

NARRATIVE: CASE EVENT DATE: 201004
